FAERS Safety Report 8169026-9 (Version None)
Quarter: 2012Q1

REPORT INFORMATION
  Report Type: 
  Country: None (occurrence: None)
  Receive Date: 20120227
  Receipt Date: 20120222
  Transmission Date: 20120608
  Serious: No
  Sender: FDA-Public Use
  Company Number: US-PFIZER INC-2012047471

PATIENT
  Sex: Male
  Weight: 20.4 kg

DRUGS (1)
  1. GENOTROPIN [Suspect]
     Indication: GROWTH HORMONE DEFICIENCY
     Dosage: 0.6 MG, 1X/DAY
     Route: 058

REACTIONS (4)
  - NAUSEA [None]
  - HEADACHE [None]
  - PYREXIA [None]
  - VOMITING [None]
